FAERS Safety Report 11780268 (Version 1)
Quarter: 2015Q4

REPORT INFORMATION
  Report Type: Spontaneous
  Country: US (occurrence: US)
  Receive Date: 20151126
  Receipt Date: 20151126
  Transmission Date: 20160305
  Serious: No
  Sender: FDA-Public Use
  Company Number: US-JNJFOC-20150927119

PATIENT
  Sex: Female
  Weight: 68.49 kg

DRUGS (4)
  1. TYLENOL [Suspect]
     Active Substance: ACETAMINOPHEN
     Indication: ARTHROPOD BITE
     Route: 048
  2. ^ARTHRITIS MEDICINE^ [Concomitant]
     Indication: ARTHRITIS
     Route: 065
  3. ANTIHYPERTENSIVES [Concomitant]
     Active Substance: UNSPECIFIED INGREDIENT
     Indication: HYPERTENSION
     Route: 065
  4. TYLENOL [Suspect]
     Active Substance: ACETAMINOPHEN
     Indication: PAIN
     Route: 048

REACTIONS (3)
  - Hypersomnia [Recovered/Resolved]
  - Abnormal behaviour [Recovered/Resolved]
  - Product use issue [Recovered/Resolved]
